FAERS Safety Report 8728812 (Version 2)
Quarter: 2013Q1

REPORT INFORMATION
  Report Type: Spontaneous
  Country: BR (occurrence: BR)
  Receive Date: 20120817
  Receipt Date: 20130115
  Transmission Date: 20140127
  Serious: Yes (Death, Hospitalization)
  Sender: FDA-Public Use
  Company Number: PHHY2012BR070449

PATIENT
  Sex: Female

DRUGS (7)
  1. FORASEQ [Suspect]
     Indication: ASTHMA
     Dosage: (12/200UG) 2 TABLETS A DAY
  2. FORASEQ [Suspect]
     Dosage: (12/400 UG)/ 2 TABLETS A DAY.
  3. FORASEQ [Suspect]
     Dosage: UNK UKN, UNK
     Dates: end: 2011
  4. ONBREZ [Suspect]
     Indication: ASTHMA
     Dosage: UNK UKN, UNK
  5. ONBREZ [Suspect]
     Dosage: UNK UKN, UNK
  6. ALENIA [Suspect]
     Indication: ASTHMA
     Dosage: 1 DF, UNK
  7. SIMBICORT [Suspect]
     Indication: ASTHMA
     Dosage: 1 DF, UNK

REACTIONS (2)
  - Emphysema [Fatal]
  - Pneumonia [Fatal]
